FAERS Safety Report 11123256 (Version 1)
Quarter: 2015Q2

REPORT INFORMATION
  Report Type: Spontaneous
  Country: US (occurrence: US)
  Receive Date: 20150519
  Receipt Date: 20150519
  Transmission Date: 20150821
  Serious: No
  Sender: FDA-Public Use
  Company Number: US-AUXILIUM PHARMACEUTICALS INC.-201502061

PATIENT
  Age: 51 Year
  Sex: Male

DRUGS (5)
  1. XIAFLEX [Suspect]
     Active Substance: COLLAGENASE CLOSTRIDIUM HISTOLYTICUM
     Indication: PEYRONIE^S DISEASE
     Route: 026
     Dates: start: 20141111
  2. TAMSULOSIN [Concomitant]
     Active Substance: TAMSULOSIN
     Route: 048
  3. OMEPRAZOLE. [Concomitant]
     Active Substance: OMEPRAZOLE
     Route: 048
  4. METFORMIN [Concomitant]
     Active Substance: METFORMIN HYDROCHLORIDE
     Route: 048
  5. TESTIM [Concomitant]
     Active Substance: TESTOSTERONE
     Route: 062

REACTIONS (3)
  - Penile swelling [Recovered/Resolved]
  - Erectile dysfunction [Recovered/Resolved]
  - Penile haematoma [Recovering/Resolving]

NARRATIVE: CASE EVENT DATE: 201411
